FAERS Safety Report 7061738-3 (Version None)
Quarter: 2010Q4

REPORT INFORMATION
  Report Type: 
  Country: None (occurrence: None)
  Receive Date: 20101026
  Receipt Date: 20101021
  Transmission Date: 20110411
  Serious: Yes (Hospitalization)
  Sender: FDA-Public Use
  Company Number: DE-ELI_LILLY_AND_COMPANY-DE201006001310

PATIENT
  Sex: Male
  Weight: 85.5 kg

DRUGS (10)
  1. GEMCITABINE HCL [Suspect]
     Indication: NON-SMALL CELL LUNG CANCER
     Dosage: 2363 MG, TWICE EVERY 3 WEEKS
     Route: 042
     Dates: start: 20100518
  2. CISPLATIN [Suspect]
     Indication: NON-SMALL CELL LUNG CANCER
     Dosage: 142 MG, ONCE
     Route: 042
     Dates: start: 20100518
  3. OTHER PHARMA COMPANY INV DRUG [Suspect]
     Indication: NON-SMALL CELL LUNG CANCER
     Dosage: 800 MG, TWICE EVERY 3 WEEKS
     Route: 042
     Dates: start: 20100518
  4. ENALAPRIL MALEATE [Concomitant]
     Dosage: 10 D/F, UNK
  5. BISOPROLOL [Concomitant]
     Dosage: 2.5 D/F, UNK
  6. SANDOCAL [Concomitant]
  7. ONDANSETRON [Concomitant]
     Dosage: 8 D/F, UNK
  8. ASPIRIN [Concomitant]
     Dosage: 100 D/F, UNK
  9. HYDROCHLOROTHIAZIDE [Concomitant]
     Dosage: 25 D/F, UNK
  10. PASPERTIN [Concomitant]
     Dosage: 20 D/F, UNK

REACTIONS (2)
  - GENERAL PHYSICAL HEALTH DETERIORATION [None]
  - SYNCOPE [None]
